FAERS Safety Report 26152777 (Version 3)
Quarter: 2025Q4

REPORT INFORMATION
  Report Type: Spontaneous
  Country: US (occurrence: US)
  Receive Date: 20251214
  Receipt Date: 20251228
  Transmission Date: 20260119
  Serious: No
  Sender: LUPIN
  Company Number: US-LUPIN PHARMACEUTICALS INC.-2025-11155

PATIENT
  Age: 74 Year
  Weight: 81.633 kg

DRUGS (5)
  1. BROMFENAC [Suspect]
     Active Substance: BROMFENAC
     Indication: Product used for unknown indication
     Dosage: 2 DROPS PER EYE
  2. BROMFENAC [Suspect]
     Active Substance: BROMFENAC
     Dosage: UNK
  3. BROMFENAC [Suspect]
     Active Substance: BROMFENAC
     Dosage: 2 DROP IN EACH EYE, QD
  4. BROMFENAC [Suspect]
     Active Substance: BROMFENAC
     Dosage: UNK
  5. BROMFENAC [Suspect]
     Active Substance: BROMFENAC
     Dosage: 2 DROP, BID (TWO DROPS IN BOTH EYES TWICE A DAY, MORNING AND EVENING)

REACTIONS (4)
  - Vision blurred [Unknown]
  - Product dose omission issue [Unknown]
  - Product packaging quantity issue [Unknown]
  - Device defective [Unknown]
